FAERS Safety Report 4595035-2 (Version None)
Quarter: 2005Q1

REPORT INFORMATION
  Report Type: 
  Country: None (occurrence: None)
  Receive Date: 20050223
  Receipt Date: 20050208
  Transmission Date: 20050727
  Serious: Yes (Hospitalization)
  Sender: FDA-Public Use
  Company Number: 10222

PATIENT
  Age: 58 Year
  Sex: Male

DRUGS (2)
  1. METHOTREXATE [Suspect]
     Indication: RHEUMATOID ARTHRITIS
     Dosage: 22.5 MG WEEKLY
  2. ANAKINRA [Suspect]
     Dosage: 100 MG
     Dates: start: 20040501, end: 20040601

REACTIONS (1)
  - RHEUMATOID ARTHRITIS [None]
